FAERS Safety Report 6774787-7 (Version None)
Quarter: 2010Q2

REPORT INFORMATION
  Report Type: 
  Country: None (occurrence: None)
  Receive Date: 20100617
  Receipt Date: 20100612
  Transmission Date: 20101027
  Serious: Yes (Life-Threatening, Hospitalization)
  Sender: FDA-Public Use
  Company Number: US-ROCHE-709491

PATIENT
  Sex: Female
  Weight: 59.7 kg

DRUGS (14)
  1. TOCILIZUMAB [Suspect]
     Indication: RHEUMATOID ARTHRITIS
     Dosage: LAST DOSE: 17 MAY 2010, TEMPORARILY STOPPED.
     Route: 042
     Dates: start: 20090421, end: 20100609
  2. METHOTREXATE [Suspect]
     Indication: RHEUMATOID ARTHRITIS
     Dosage: LAST DATE PRIOR TO SAE: 06 JUNE 2010, FREQUENCY: QWK
     Route: 048
     Dates: start: 19990101
  3. FLUOXETINE [Concomitant]
     Dates: start: 20000101
  4. ACETAMINOPHEN [Concomitant]
     Dosage: DRUG NAME: ACETAMINOPHEN W/CODEINE, TDD: 2 TABLETS  PRN
     Dates: start: 20081101
  5. PRILOSEC [Concomitant]
     Dates: start: 20081101
  6. SIMVASTATIN [Concomitant]
     Dates: start: 20070101
  7. PREDNISONE [Concomitant]
     Dates: start: 19990101
  8. METHYLPHENIDATE [Concomitant]
     Dates: start: 20081001
  9. VITAMIN C [Concomitant]
     Dates: start: 20020101
  10. ZINC [Concomitant]
     Dates: start: 20020101
  11. COD-LIVER OIL [Concomitant]
     Dates: start: 20020101
  12. FOLIC ACID [Concomitant]
     Dates: start: 19990101
  13. ATENOLOL [Concomitant]
     Dates: start: 20070101, end: 20100501
  14. ATENOLOL [Concomitant]
     Dates: start: 20100502

REACTIONS (1)
  - MYOCARDIAL INFARCTION [None]
